FAERS Safety Report 8623398 (Version 2)
Quarter: 2012Q4

REPORT INFORMATION
  Report Type: Report from Study
  Country: US (occurrence: US)
  Receive Date: 20120620
  Receipt Date: 20121003
  Transmission Date: 20130627
  Serious: Yes (Other)
  Sender: FDA-Public Use
  Company Number: US-US-EMD SERONO, INC.-7140199

PATIENT
  Sex: Female

DRUGS (1)
  1. NOVANTRONE [Suspect]
     Indication: MULTIPLE SCLEROSIS

REACTIONS (6)
  - Cardiac failure [Unknown]
  - Contusion [Unknown]
  - Bone pain [Unknown]
  - Rash [Unknown]
  - Pallor [Unknown]
  - Infection [Unknown]
